FAERS Safety Report 9206887 (Version 1)
Quarter: 2013Q2

REPORT INFORMATION
  Report Type: Spontaneous
  Country: US (occurrence: US)
  Receive Date: 20130403
  Receipt Date: 20130403
  Transmission Date: 20140414
  Serious: Yes (Other)
  Sender: FDA-Public Use
  Company Number: US-JNJFOC-20130314860

PATIENT
  Age: 6 Decade
  Sex: Female
  Weight: 90.72 kg

DRUGS (2)
  1. INVEGA [Suspect]
     Indication: SCHIZOPHRENIA
     Route: 048
  2. INSULIN [Concomitant]
     Indication: DIABETES MELLITUS
     Route: 058

REACTIONS (4)
  - Renal failure [Not Recovered/Not Resolved]
  - Prerenal failure [Not Recovered/Not Resolved]
  - Blood disorder [Not Recovered/Not Resolved]
  - Leukocytosis [Not Recovered/Not Resolved]
